FAERS Safety Report 9327057 (Version 2)
Quarter: 2013Q2

REPORT INFORMATION
  Report Type: Spontaneous
  Country: US (occurrence: US)
  Receive Date: 20130604
  Receipt Date: 20130624
  Transmission Date: 20140414
  Serious: No
  Sender: FDA-Public Use
  Company Number: US-PFIZER INC-2013167290

PATIENT
  Age: 65 Year
  Sex: Female
  Weight: 37.64 kg

DRUGS (6)
  1. SUTENT [Suspect]
     Indication: HEPATIC NEOPLASM
     Dosage: 37.5 MG, 1X/DAY
     Dates: start: 20130524
  2. SUTENT [Suspect]
     Indication: RENAL NEOPLASM
  3. SUTENT [Suspect]
     Indication: PRIMITIVE NEUROECTODERMAL TUMOUR
  4. JANUVIA [Concomitant]
     Indication: DIABETES MELLITUS
     Dosage: 50 MG, UNK
  5. LISINOPRIL [Concomitant]
     Indication: BLOOD PRESSURE INCREASED
     Dosage: 10 MG, UNK
  6. PRANDIN [Concomitant]
     Indication: DIABETES MELLITUS
     Dosage: 1 MG, UNK

REACTIONS (5)
  - Dry mouth [Recovered/Resolved]
  - Abdominal discomfort [Recovered/Resolved]
  - Diarrhoea [Unknown]
  - Nausea [Unknown]
  - Eye swelling [Unknown]
